FAERS Safety Report 18399491 (Version 2)
Quarter: 2020Q4

REPORT INFORMATION
  Report Type: Spontaneous
  Country: AU (occurrence: AU)
  Receive Date: 20201019
  Receipt Date: 20201019
  Transmission Date: 20210114
  Serious: Yes (Hospitalization)
  Sender: FDA-Public Use
  Company Number: AU-PFIZER INC-2020395302

PATIENT
  Age: 18 Year
  Sex: Female

DRUGS (4)
  1. DI-GESIC [DEXTROPROPOXYPHENE;PARACETAMOL] ? [Interacting]
     Active Substance: ACETAMINOPHEN\PROPOXYPHENE
     Dosage: 65 DF, (TOTAL OF 21 G PARACETAMOL AND 2.1 G PROPOXYPHENE)
     Route: 048
  2. CROMOGLYCATE DISODIUM [Concomitant]
     Indication: ASTHMA
     Dosage: UNK
     Route: 055
  3. ACETYLCYSTEINE. [Suspect]
     Active Substance: ACETYLCYSTEINE
     Indication: TOXICITY TO VARIOUS AGENTS
     Dosage: 9 G
     Route: 042
  4. BECLOMETHASONE [Concomitant]
     Active Substance: BECLOMETHASONE
     Indication: ASTHMA
     Dosage: UNK
     Route: 055

REACTIONS (3)
  - Bronchospasm [Recovered/Resolved]
  - Drug interaction [Recovered/Resolved]
  - Asthma [Recovered/Resolved]
